FAERS Safety Report 9352912 (Version 2)
Quarter: 2013Q2

REPORT INFORMATION
  Report Type: Spontaneous
  Country: CN (occurrence: CN)
  Receive Date: 20130618
  Receipt Date: 20130619
  Transmission Date: 20140414
  Serious: Yes (Other)
  Sender: FDA-Public Use
  Company Number: CN-JNJFOC-20130606130

PATIENT
  Sex: Male

DRUGS (2)
  1. TYLENOL COLD [Suspect]
     Indication: PYREXIA
     Route: 048
     Dates: start: 20120409, end: 20120410
  2. TYLENOL COLD [Suspect]
     Indication: LUNG INFECTION
     Route: 048
     Dates: start: 20120409, end: 20120410

REACTIONS (1)
  - Blood pressure decreased [Recovering/Resolving]
